FAERS Safety Report 6496549-0 (Version None)
Quarter: 2009Q4

REPORT INFORMATION
  Report Type: 
  Country: None (occurrence: None)
  Receive Date: 20091210
  Receipt Date: 20091201
  Transmission Date: 20100525
  Serious: Yes (Hospitalization)
  Sender: FDA-Public Use
  Company Number: A-CH2009-30903

PATIENT
  Age: 54 Year
  Sex: Female
  Weight: 60 kg

DRUGS (8)
  1. TRACLEER [Suspect]
     Indication: PULMONARY ARTERIAL HYPERTENSION
     Dosage: 62.5 MG, BID, ORAL
     Route: 048
     Dates: start: 20080519
  2. LASIX [Concomitant]
  3. PREDNISOLONE (PREDNISOLONE) [Concomitant]
  4. SPIRONOLACTONE [Concomitant]
  5. ACETYLCYSTEINE [Concomitant]
  6. NIFEDIPINE [Concomitant]
  7. CALCIUM CARBONATE W/COLECALCIFEROL (COLECALCIFEROL, CALCIUM CARBONATE) [Concomitant]
  8. DOXOFYLLINE (DOXOFYLLINE) [Concomitant]

REACTIONS (6)
  - BRONCHOPULMONARY ASPERGILLOSIS [None]
  - DISEASE PROGRESSION [None]
  - FALL [None]
  - HIP FRACTURE [None]
  - PNEUMONIA [None]
  - PULMONARY ARTERIAL HYPERTENSION [None]
